FAERS Safety Report 13113044 (Version 1)
Quarter: 2017Q1

REPORT INFORMATION
  Report Type: Spontaneous
  Country: GB (occurrence: GB)
  Receive Date: 20170113
  Receipt Date: 20170113
  Transmission Date: 20170428
  Serious: Yes (Hospitalization, Other)
  Sender: FDA-Public Use
  Company Number: GB-TEVA-728981ACC

PATIENT
  Age: 23 Year
  Sex: Female
  Weight: 98 kg

DRUGS (6)
  1. POTASSIUM [Concomitant]
     Active Substance: POTASSIUM
  2. PREDNISOLONE. [Suspect]
     Active Substance: PREDNISOLONE
     Indication: HENOCH-SCHONLEIN PURPURA
     Route: 048
     Dates: start: 20160321
  3. COD LIVER OIL [Concomitant]
     Active Substance: COD LIVER OIL
  4. OMEPRAZOLE. [Concomitant]
     Active Substance: OMEPRAZOLE
  5. DAPSONE. [Concomitant]
     Active Substance: DAPSONE
  6. CALCIUM AND VITAMIN D [Concomitant]
     Active Substance: CALCIUM\VITAMIN D

REACTIONS (6)
  - Lipohypertrophy [Not Recovered/Not Resolved]
  - Arthralgia [Recovering/Resolving]
  - Anxiety [Not Recovered/Not Resolved]
  - Vision blurred [Not Recovered/Not Resolved]
  - Skin striae [Not Recovered/Not Resolved]
  - Abdominal pain upper [Recovering/Resolving]
